FAERS Safety Report 5996349-1 (Version None)
Quarter: 2008Q4

REPORT INFORMATION
  Report Type: 
  Country: None (occurrence: None)
  Receive Date: 20081212
  Receipt Date: 20081009
  Transmission Date: 20090506
  Serious: No
  Sender: FDA-Public Use
  Company Number: US-ABBOTT-08P-163-0480988-00

PATIENT
  Sex: Male
  Weight: 68.1 kg

DRUGS (2)
  1. HUMIRA [Suspect]
     Indication: CROHN'S DISEASE
     Dates: start: 20080201
  2. PREDNISONE TAB [Suspect]
     Indication: INJECTION SITE REACTION
     Dates: start: 20080905

REACTIONS (7)
  - ERYTHEMA [None]
  - FEELING HOT [None]
  - HEADACHE [None]
  - INJECTION SITE REACTION [None]
  - PRURITUS [None]
  - RASH [None]
  - SWELLING [None]
